FAERS Safety Report 8943273 (Version 1)
Quarter: 2012Q4

REPORT INFORMATION
  Report Type: Spontaneous
  Country: JP (occurrence: None)
  Receive Date: 20121123
  Receipt Date: 20121123
  Transmission Date: 20130627
  Serious: Yes (Death, Other)
  Sender: FDA-Public Use
  Company Number: DSA_61022_2012

PATIENT
  Age: 58 Year
  Sex: Male

DRUGS (25)
  1. FLUOROURACIL (FLUOROURACIL) [Suspect]
     Indication: NEOPLASM MALIGNANT
     Dosage: (DF)
     Dates: start: 200811
  2. FLUOROURACIL (FLUOROURACIL) [Suspect]
     Indication: METASTASES TO PLEURA
     Dosage: (DF)
     Dates: start: 200811
  3. FLUOROURACIL (FLUOROURACIL) [Suspect]
     Indication: METASTASES TO LUNG
     Dosage: (DF)
     Dates: start: 200811
  4. FLUOROURACIL (FLUOROURACIL) [Suspect]
     Indication: METASTASES TO LYMPH NODES
     Dosage: (DF)
     Dates: start: 200811
  5. PREDNISONE (PREDNISONE) [Suspect]
     Dosage: (DF)
     Dates: start: 200811
  6. PREDNISONE (PREDNISONE) [Suspect]
     Dosage: (DF)
     Dates: start: 200811
  7. PREDNISONE (PREDNISONE) [Suspect]
     Dosage: (DF)
     Dates: start: 200811
  8. PREDNISONE (PREDNISONE) [Suspect]
     Dosage: (DF)
     Dates: start: 200811
  9. ETOPOSIDE [Suspect]
     Dosage: (DF)
     Dates: start: 200811
  10. ETOPOSIDE [Suspect]
     Dosage: (DF)
     Dates: start: 200811
  11. ETOPOSIDE [Suspect]
     Dosage: (DF)
     Dates: start: 200811
  12. ETOPOSIDE [Suspect]
     Dosage: (DF)
     Dates: start: 200811
  13. CISPLATIN [Suspect]
     Dosage: (DF)
  14. CISPLATIN [Suspect]
     Dosage: (DF)
  15. CISPLATIN [Suspect]
     Dosage: (DF)
  16. CISPLATIN [Suspect]
     Dosage: (DF)
  17. CYCLOPHOSPHAMIDE [Suspect]
     Dosage: (DF)
     Dates: start: 200811
  18. CYCLOPHOSPHAMIDE [Suspect]
     Dosage: (DF)
     Dates: start: 200811
  19. CYCLOPHOSPHAMIDE [Suspect]
     Dosage: (DF)
     Dates: start: 200811
  20. CYCLOPHOSPHAMIDE [Suspect]
     Dosage: (DF)
     Dates: start: 200811
  21. PROCARBAZINE [Suspect]
     Dosage: (DF)
     Dates: start: 200811
  22. PROCARBAZINE [Suspect]
     Dosage: (DF)
     Dates: start: 200811
  23. PROCARBAZINE [Suspect]
     Dosage: (DF)
     Dates: start: 200811
  24. PROCARBAZINE [Suspect]
     Dosage: (DF)
     Dates: start: 200811
  25. HORMONES AND RELATED AGENTS [Concomitant]

REACTIONS (3)
  - Deep vein thrombosis [None]
  - Pulmonary venous thrombosis [None]
  - Malignant neoplasm progression [None]
